FAERS Safety Report 6889436-7 (Version None)
Quarter: 2010Q3

REPORT INFORMATION
  Report Type: 
  Country: None (occurrence: None)
  Receive Date: 20100730
  Receipt Date: 20080227
  Transmission Date: 20110219
  Serious: No
  Sender: FDA-Public Use
  Company Number: US-PFIZER INC-2008019934

PATIENT
  Age: 54 Year
  Sex: Female

DRUGS (5)
  1. LIPITOR [Suspect]
     Indication: BLOOD CHOLESTEROL INCREASED
     Dates: start: 20040101, end: 20080124
  2. LEXAPRO [Suspect]
     Indication: ANXIETY
     Dates: start: 20050101, end: 20080124
  3. LEXAPRO [Suspect]
     Indication: DEPRESSION
  4. PROTONIX [Suspect]
     Indication: GASTROOESOPHAGEAL REFLUX DISEASE
     Dates: start: 20070701, end: 20080124
  5. MENEST [Suspect]
     Indication: HORMONE REPLACEMENT THERAPY
     Dates: start: 20020101, end: 20080124

REACTIONS (2)
  - DRUG HYPERSENSITIVITY [None]
  - URTICARIA [None]
